FAERS Safety Report 21625527 (Version 1)
Quarter: 2022Q4

REPORT INFORMATION
  Report Type: Spontaneous
  Country: US (occurrence: None)
  Receive Date: 20221122
  Receipt Date: 20221122
  Transmission Date: 20230113
  Serious: No
  Sender: FDA-Public Use
  Company Number: US-ROCHE-2989851

PATIENT
  Sex: Female
  Weight: 81.720 kg

DRUGS (1)
  1. HERCEPTIN [Suspect]
     Active Substance: TRASTUZUMAB
     Indication: Breast cancer
     Dosage: INITIAL DOSE WAS 600MG BUT LAST DOSE WAS 504 MG ;ONGOING: NO?8 MG/KG AS THE INITIAL DOSE, THEN 6 MG/
     Route: 041
     Dates: start: 20201220, end: 20211202

REACTIONS (1)
  - Maternal exposure during pregnancy [Unknown]
